FAERS Safety Report 14560606 (Version 2)
Quarter: 2018Q1

REPORT INFORMATION
  Report Type: Report from Study
  Country: US (occurrence: US)
  Receive Date: 20180222
  Receipt Date: 20180309
  Transmission Date: 20180509
  Serious: Yes (Hospitalization, Other)
  Sender: FDA-Public Use
  Company Number: US-TEVA-2018-US-862163

PATIENT
  Sex: Female

DRUGS (1)
  1. COPAXONE [Suspect]
     Active Substance: GLATIRAMER ACETATE
     Indication: MULTIPLE SCLEROSIS
     Route: 058
     Dates: start: 20180119, end: 20180126

REACTIONS (7)
  - Abscess drainage [Unknown]
  - Crohn^s disease [Unknown]
  - Abdominal abscess [Recovered/Resolved]
  - Pain [Unknown]
  - Diplopia [Unknown]
  - Fistula repair [Unknown]
  - Intestinal resection [Unknown]
